FAERS Safety Report 10039233 (Version 1)
Quarter: 2014Q1

REPORT INFORMATION
  Report Type: Spontaneous
  Country: JP (occurrence: JP)
  Receive Date: 20140326
  Receipt Date: 20140326
  Transmission Date: 20141002
  Serious: Yes (Death, Other)
  Sender: FDA-Public Use
  Company Number: PHHY2014JP035315

PATIENT
  Age: 41 Year
  Sex: Female

DRUGS (2)
  1. CICLOSPORIN [Suspect]
     Indication: GRAFT VERSUS HOST DISEASE
  2. PREDNISOLONE [Suspect]
     Indication: GRAFT VERSUS HOST DISEASE
     Dosage: 1 MG/KG, UNK

REACTIONS (5)
  - Multi-organ failure [Fatal]
  - Lymphopenia [Unknown]
  - Hepatic function abnormal [Unknown]
  - Peritonitis [Unknown]
  - Pneumonia [Unknown]
